FAERS Safety Report 18286156 (Version 1)
Quarter: 2020Q3

REPORT INFORMATION
  Report Type: Spontaneous
  Country: US (occurrence: US)
  Receive Date: 20200919
  Receipt Date: 20200919
  Transmission Date: 20201103
  Serious: Yes (Hospitalization)
  Sender: FDA-Public Use
  Company Number: NVSC2020US254522

PATIENT
  Age: 67 Year
  Sex: Male

DRUGS (15)
  1. LINEZOLID. [Suspect]
     Active Substance: LINEZOLID
     Indication: ABSCESS
  2. MOXIFLOXACIN. [Suspect]
     Active Substance: MOXIFLOXACIN
     Indication: OSTEOMYELITIS
     Dosage: UNK
     Route: 065
  3. MOXIFLOXACIN. [Suspect]
     Active Substance: MOXIFLOXACIN
     Indication: NOCARDIOSIS
  4. TRIMETHOPRIM SULFAMETHOXAZOLE [Suspect]
     Active Substance: SULFAMETHOXAZOLE\TRIMETHOPRIM
     Indication: ABSCESS
     Dosage: UNK
     Route: 048
  5. DOXYCYCLINE. [Suspect]
     Active Substance: DOXYCYCLINE
     Indication: OSTEOMYELITIS
     Dosage: UNK
     Route: 065
  6. CEFTRIAXONE. [Suspect]
     Active Substance: CEFTRIAXONE
     Indication: ABSCESS
  7. CEFTRIAXONE. [Suspect]
     Active Substance: CEFTRIAXONE
     Indication: NOCARDIOSIS
  8. LINEZOLID. [Suspect]
     Active Substance: LINEZOLID
     Indication: OSTEOMYELITIS
     Dosage: UNK
     Route: 065
  9. CEFTRIAXONE. [Suspect]
     Active Substance: CEFTRIAXONE
     Indication: OSTEOMYELITIS
     Dosage: UNK
     Route: 042
  10. LINEZOLID. [Suspect]
     Active Substance: LINEZOLID
     Indication: NOCARDIOSIS
  11. TRIMETHOPRIM SULFAMETHOXAZOLE [Suspect]
     Active Substance: SULFAMETHOXAZOLE\TRIMETHOPRIM
     Indication: NOCARDIOSIS
     Dosage: UNK
     Route: 042
  12. DOXYCYCLINE. [Suspect]
     Active Substance: DOXYCYCLINE
     Indication: NOCARDIOSIS
  13. MOXIFLOXACIN. [Suspect]
     Active Substance: MOXIFLOXACIN
     Indication: ABSCESS
  14. TRIMETHOPRIM SULFAMETHOXAZOLE [Suspect]
     Active Substance: SULFAMETHOXAZOLE\TRIMETHOPRIM
     Indication: OSTEOMYELITIS
     Dosage: UNK
     Route: 042
  15. DOXYCYCLINE. [Suspect]
     Active Substance: DOXYCYCLINE
     Indication: ABSCESS

REACTIONS (6)
  - Osteomyelitis [Unknown]
  - Vomiting [Recovered/Resolved]
  - Pancytopenia [Unknown]
  - Abscess [Recovered/Resolved]
  - Drug ineffective [Unknown]
  - Nausea [Recovered/Resolved]
